FAERS Safety Report 22889201 (Version 3)
Quarter: 2024Q1

REPORT INFORMATION
  Report Type: Report from Study
  Country: BR (occurrence: BR)
  Receive Date: 20230831
  Receipt Date: 20240124
  Transmission Date: 20240409
  Serious: Yes (Hospitalization, Other)
  Sender: FDA-Public Use
  Company Number: BR-002147023-NVSC2023BR187716

PATIENT
  Sex: Male

DRUGS (1)
  1. ENTRESTO [Suspect]
     Active Substance: SACUBITRIL\VALSARTAN
     Indication: Cardiac failure
     Dosage: 50 MG, UNKNOWN
     Route: 065

REACTIONS (7)
  - Schizophrenia [Recovered/Resolved]
  - Hyponatraemia [Recovered/Resolved]
  - Pneumonia [Recovered/Resolved]
  - Diabetes mellitus [Unknown]
  - Hypertension [Unknown]
  - Obesity [Unknown]
  - Concomitant disease aggravated [Unknown]
